FAERS Safety Report 23187421 (Version 1)
Quarter: 2023Q4

REPORT INFORMATION
  Report Type: Spontaneous
  Country: US (occurrence: US)
  Receive Date: 20231115
  Receipt Date: 20231115
  Transmission Date: 20240110
  Serious: Yes (Other)
  Sender: FDA-Public Use
  Company Number: US-FreseniusKabi-FK202318297

PATIENT
  Age: 73 Year
  Sex: Male
  Weight: 80 kg

DRUGS (10)
  1. MIDAZOLAM [Suspect]
     Active Substance: MIDAZOLAM
     Indication: Sedative therapy
  2. MIDAZOLAM [Suspect]
     Active Substance: MIDAZOLAM
     Dosage: 2ND DOSE
  3. MIDAZOLAM [Suspect]
     Active Substance: MIDAZOLAM
     Dosage: 3RD DOSE
  4. DEXMEDETOMIDINE [Concomitant]
     Active Substance: DEXMEDETOMIDINE
     Indication: Sedative therapy
  5. MEPIVACAINE [Concomitant]
     Active Substance: MEPIVACAINE HYDROCHLORIDE
     Indication: Spinal anaesthesia
     Dosage: PERFORMED AT THE LEVEL OF THE FOURTH AND FIFTH LUMBAR VERTEBRAE
  6. FENTANYL [Concomitant]
     Active Substance: FENTANYL\FENTANYL CITRATE
     Indication: Anaesthesia
  7. PROPOFOL [Concomitant]
     Active Substance: PROPOFOL
     Indication: Anaesthesia
  8. PROPOFOL [Concomitant]
     Active Substance: PROPOFOL
     Dosage: PERFORMED AT THE LEVEL OF THE FOURTH AND 4FTH LUMBAR VERTEBRAE
  9. CEFAZOLIN [Concomitant]
     Active Substance: CEFAZOLIN
     Indication: Antibiotic prophylaxis
  10. RINGER LACTATED [Concomitant]
     Dosage: A TOTAL OF 1,500 ML

REACTIONS (1)
  - Anaphylactic reaction [Recovered/Resolved]
